FAERS Safety Report 13805121 (Version 2)
Quarter: 2018Q3

REPORT INFORMATION
  Report Type: Spontaneous
  Country: US (occurrence: US)
  Receive Date: 20170728
  Receipt Date: 20180829
  Transmission Date: 20181010
  Serious: No
  Sender: FDA-Public Use
  Company Number: US-PFIZER INC-2017324190

PATIENT
  Age: 64 Year
  Sex: Female
  Weight: 51 kg

DRUGS (4)
  1. ALBUTEROL. [Interacting]
     Active Substance: ALBUTEROL
     Dosage: UNK, 1X/DAY
     Route: 045
  2. ACETYLCYSTEINE. [Interacting]
     Active Substance: ACETYLCYSTEINE
     Dosage: 3 ML, 1X/DAY
     Route: 045
  3. ALBUTEROL. [Interacting]
     Active Substance: ALBUTEROL
     Indication: LUNG DISORDER
     Dosage: UNK UNK, 2X/DAY
     Dates: start: 2016
  4. ACETYLCYSTEINE. [Suspect]
     Active Substance: ACETYLCYSTEINE
     Indication: LUNG DISORDER
     Dosage: UNK UNK, 2X/DAY

REACTIONS (5)
  - Drug interaction [Unknown]
  - Stomatitis [Recovered/Resolved]
  - Intentional product misuse [Unknown]
  - Tongue disorder [Unknown]
  - Dysphonia [Not Recovered/Not Resolved]

NARRATIVE: CASE EVENT DATE: 2016
